FAERS Safety Report 17916021 (Version 1)
Quarter: 2020Q2

REPORT INFORMATION
  Report Type: Spontaneous
  Country: US (occurrence: US)
  Receive Date: 20200618
  Receipt Date: 20200618
  Transmission Date: 20200714
  Serious: Yes (Disabling)
  Sender: FDA-Public Use
  Company Number: None

PATIENT
  Age: 44 Year
  Sex: Male
  Weight: 81 kg

DRUGS (1)
  1. ZOLPIDEM TARTRATE ER 12.5MG [Suspect]
     Active Substance: ZOLPIDEM TARTRATE
     Indication: MIDDLE INSOMNIA
     Dosage: ?          QUANTITY:1 TABLET(S);?
     Route: 048
     Dates: start: 20200603, end: 20200607

REACTIONS (4)
  - Loss of consciousness [None]
  - Syncope [None]
  - Joint injury [None]
  - Fall [None]

NARRATIVE: CASE EVENT DATE: 20200608
